FAERS Safety Report 5955845-3 (Version None)
Quarter: 2008Q4

REPORT INFORMATION
  Report Type: 
  Country: None (occurrence: None)
  Receive Date: 20081117
  Receipt Date: 20081105
  Transmission Date: 20090506
  Serious: Yes (Other)
  Sender: FDA-Public Use
  Company Number: ES-PFIZER INC-2008094786

PATIENT
  Age: 63 Year
  Sex: Male

DRUGS (1)
  1. VORICONAZOLE [Suspect]
     Indication: MENINGITIS CRYPTOCOCCAL

REACTIONS (1)
  - IMMUNE RECONSTITUTION SYNDROME [None]
